FAERS Safety Report 12658618 (Version 2)
Quarter: 2018Q1

REPORT INFORMATION
  Report Type: Spontaneous
  Country: DE (occurrence: DE)
  Receive Date: 20160817
  Receipt Date: 20180305
  Transmission Date: 20180508
  Serious: Yes (Other)
  Sender: FDA-Public Use
  Company Number: DE-SUN PHARMACEUTICAL INDUSTRIES LTD-2016R1-122132

PATIENT
  Sex: Female

DRUGS (3)
  1. CIDOFOVIR. [Suspect]
     Active Substance: CIDOFOVIR
     Indication: HERPES SIMPLEX
     Dosage: 5MG/KG/WEEK
     Route: 065
  2. ACICLOVIR [Suspect]
     Active Substance: ACYCLOVIR
     Indication: VARICELLA ZOSTER VIRUS INFECTION
  3. ACICLOVIR [Suspect]
     Active Substance: ACYCLOVIR
     Indication: HERPES SIMPLEX
     Dosage: 3 X 10 MG/KG/DAY OR 3 X 15 MG/KG/DAY
     Route: 065

REACTIONS (5)
  - Drug ineffective [Unknown]
  - Gene mutation [Unknown]
  - Stomatitis [Unknown]
  - Drug resistance [Unknown]
  - Pharyngitis [Unknown]
